FAERS Safety Report 8857066 (Version 1)
Quarter: 2012Q4

REPORT INFORMATION
  Report Type: Spontaneous
  Country: US (occurrence: None)
  Receive Date: 20121022
  Receipt Date: 20121022
  Transmission Date: 20130627
  Serious: Yes (Disabling)
  Sender: FDA-Public Use
  Company Number: None

PATIENT
  Age: 33 Year
  Sex: Female
  Weight: 79.83 kg

DRUGS (1)
  1. MIRENA [Suspect]

REACTIONS (6)
  - Gait disturbance [None]
  - Medical device complication [None]
  - Uterine perforation [None]
  - Loss of libido [None]
  - Uterine disorder [None]
  - Infertility female [None]
